FAERS Safety Report 18625338 (Version 3)
Quarter: 2024Q1

REPORT INFORMATION
  Report Type: Spontaneous
  Country: US (occurrence: US)
  Receive Date: 20201216
  Receipt Date: 20240226
  Transmission Date: 20240409
  Serious: Yes (Other)
  Sender: FDA-Public Use
  Company Number: US-SANOFI-00391889

PATIENT
  Age: 77 Year
  Sex: Male

DRUGS (2)
  1. LANTUS [Suspect]
     Active Substance: INSULIN GLARGINE
     Dosage: UNK
     Route: 065
  2. LANTUS [Suspect]
     Active Substance: INSULIN GLARGINE
     Dosage: UNK
     Dates: start: 20240215

REACTIONS (8)
  - Prostate cancer [Unknown]
  - Abnormal loss of weight [Unknown]
  - Animal bite [Unknown]
  - Nerve injury [Unknown]
  - Blood glucose increased [Unknown]
  - Expired product administered [Unknown]
  - Intentional overdose [Unknown]
  - Product storage error [Unknown]

NARRATIVE: CASE EVENT DATE: 20240215
